FAERS Safety Report 6258993-6 (Version None)
Quarter: 2009Q3

REPORT INFORMATION
  Report Type: 
  Country: None (occurrence: None)
  Receive Date: 20090707
  Receipt Date: 20090629
  Transmission Date: 20100115
  Serious: Yes (Other)
  Sender: FDA-Public Use
  Company Number: PHEH2009US05408

PATIENT
  Sex: Female
  Weight: 73.016 kg

DRUGS (6)
  1. RECLAST [Suspect]
     Indication: OSTEOPOROSIS
     Dosage: UNK
     Dates: start: 20090520, end: 20090520
  2. LODRANE [Concomitant]
     Indication: HYPERSENSITIVITY
     Dosage: 45/6 UNK, QD CHRONIC USE
     Route: 048
  3. ESTRADIOL [Concomitant]
     Indication: MENOPAUSAL SYMPTOMS
     Dosage: 1 MG, QD CHRONIC
     Route: 062
  4. PROGESTERONE [Concomitant]
     Indication: MENOPAUSAL SYMPTOMS
     Dosage: 200 MG, CHRONIC
     Route: 062
  5. LIDOCAINE [Concomitant]
     Dosage: 3 %, QD CHRONIC
     Route: 062
  6. HYDROCORTISONE [Concomitant]
     Indication: LICHEN SCLEROSUS
     Dosage: .5 %, UNK

REACTIONS (4)
  - DYSSTASIA [None]
  - INFLUENZA LIKE ILLNESS [None]
  - JOINT SWELLING [None]
  - MUSCULAR WEAKNESS [None]
